FAERS Safety Report 6046198-3 (Version None)
Quarter: 2009Q1

REPORT INFORMATION
  Report Type: 
  Country: None (occurrence: None)
  Receive Date: 20090121
  Receipt Date: 20090121
  Transmission Date: 20090719
  Serious: Yes (Other)
  Sender: FDA-Public Use
  Company Number: None

PATIENT
  Sex: Female
  Weight: 74.8435 kg

DRUGS (6)
  1. AMBIEN [Suspect]
     Indication: INSOMNIA
     Dosage: 15MG 7DAYS WEEK
     Dates: start: 20030901, end: 20080116
  2. AMBIEN [Suspect]
     Indication: OBSESSIVE-COMPULSIVE DISORDER
     Dosage: 15MG 7DAYS WEEK
     Dates: start: 20030901, end: 20080116
  3. ROZEREM [Concomitant]
  4. LUNESTA [Concomitant]
  5. TRAZODONE HCL [Concomitant]
  6. AMBIEN CR [Concomitant]

REACTIONS (5)
  - ABNORMAL BEHAVIOUR [None]
  - FALL [None]
  - JOINT INJURY [None]
  - SLEEP-RELATED EATING DISORDER [None]
  - WEIGHT INCREASED [None]
